FAERS Safety Report 16550969 (Version 1)
Quarter: 2019Q3

REPORT INFORMATION
  Report Type: Spontaneous
  Country: IT (occurrence: IT)
  Receive Date: 20190710
  Receipt Date: 20190710
  Transmission Date: 20191004
  Serious: Yes (Other)
  Sender: FDA-Public Use
  Company Number: IT-SA-2019SA182715

PATIENT
  Age: 57 Year
  Sex: Male

DRUGS (6)
  1. DOXIFLURIDINE [Suspect]
     Active Substance: DOXIFLURIDINE
     Dosage: 600 MG, QCY
     Route: 041
     Dates: start: 20190613, end: 20190613
  2. FLUOROURACIL. [Suspect]
     Active Substance: FLUOROURACIL
     Dosage: 4000 MG, QCY
     Route: 042
     Dates: start: 20190613, end: 20190613
  3. DOXIFLURIDINE [Suspect]
     Active Substance: DOXIFLURIDINE
     Indication: COLON CANCER
     Dosage: 600 MG, QCY
     Route: 040
     Dates: start: 20190225, end: 20190225
  4. OXALIPLATIN. [Suspect]
     Active Substance: OXALIPLATIN
     Indication: COLON CANCER
     Dosage: 140 MG, QCY
     Route: 042
     Dates: start: 20190225, end: 20190225
  5. OXALIPLATIN. [Suspect]
     Active Substance: OXALIPLATIN
     Dosage: 140 MG, QCY
     Route: 042
     Dates: start: 20190613, end: 20190613
  6. FLUOROURACIL. [Suspect]
     Active Substance: FLUOROURACIL
     Indication: COLON CANCER
     Dosage: 4000 MG, QCY
     Route: 042
     Dates: start: 20190225, end: 20190225

REACTIONS (1)
  - Blood pressure increased [Recovered/Resolved]

NARRATIVE: CASE EVENT DATE: 20190522
